FAERS Safety Report 6213520-4 (Version None)
Quarter: 2009Q2

REPORT INFORMATION
  Report Type: 
  Country: None (occurrence: None)
  Receive Date: 20090601
  Receipt Date: 20090518
  Transmission Date: 20091009
  Serious: Yes (Hospitalization)
  Sender: FDA-Public Use
  Company Number: CFNT-330

PATIENT
  Age: 47 Year
  Sex: Female

DRUGS (8)
  1. MEIACT MS TABLET (CEFDITOREN PIVOXIL) [Suspect]
     Indication: NASOPHARYNGITIS
     Dosage: 300MG ORALLY
     Route: 048
     Dates: start: 20090213, end: 20090219
  2. FAROM (FAROPENEM SODIUM HYDRATE) [Suspect]
     Indication: INFLUENZA
     Dosage: PO
     Route: 048
  3. ACETAMINOPHEN [Suspect]
     Indication: NASOPHARYNGITIS
     Dosage: P.R.N. PO
     Route: 048
     Dates: start: 20090213, end: 20090219
  4. TAMIFLU [Suspect]
     Indication: INFLUENZA
     Dosage: 150 MG PO
     Route: 048
     Dates: start: 20090213, end: 20090219
  5. GATIFLO (GATIFLOXACIN HYDRATE) [Suspect]
     Indication: NASOPHARYNGITIS
     Dosage: 400 MG PO
     Route: 048
     Dates: start: 20090213, end: 20090219
  6. CEFAMEZIN (CEFAZOLIN SODIUM HYDRATE) [Suspect]
     Indication: PYELONEPHRITIS
     Dosage: I.V.
     Route: 042
     Dates: start: 20090213, end: 20090219
  7. EXACIN (ISEPAMICIN SULFATE) [Suspect]
     Indication: PYELONEPHRITIS
     Dosage: PO
     Route: 048
     Dates: start: 20090213, end: 20090219
  8. IOVERSOL [Concomitant]

REACTIONS (2)
  - ANOREXIA [None]
  - TUBULOINTERSTITIAL NEPHRITIS [None]
